FAERS Safety Report 18396887 (Version 2)
Quarter: 2020Q4

REPORT INFORMATION
  Report Type: Report from Study
  Country: CA (occurrence: CA)
  Receive Date: 20201019
  Receipt Date: 20201201
  Transmission Date: 20210114
  Serious: Yes (Disabling, Other)
  Sender: FDA-Public Use
  Company Number: CA-EMD SERONO-9187013

PATIENT
  Age: 31 Year
  Sex: Male

DRUGS (2)
  1. REBIF [Suspect]
     Active Substance: INTERFERON BETA-1A
     Indication: MULTIPLE SCLEROSIS
     Route: 058
     Dates: start: 20200905
  2. REBIF [Suspect]
     Active Substance: INTERFERON BETA-1A
     Route: 058
     Dates: start: 2020, end: 202011

REACTIONS (13)
  - Depression [Not Recovered/Not Resolved]
  - Loss of consciousness [Unknown]
  - Nausea [Recovering/Resolving]
  - Anxiety [Unknown]
  - Discomfort [Recovering/Resolving]
  - Malaise [Not Recovered/Not Resolved]
  - Fall [Not Recovered/Not Resolved]
  - Suicide attempt [Unknown]
  - Stress [Recovering/Resolving]
  - Impaired work ability [Unknown]
  - Vomiting [Unknown]
  - Dizziness [Recovering/Resolving]
  - Influenza like illness [Unknown]

NARRATIVE: CASE EVENT DATE: 2020
